FAERS Safety Report 16795111 (Version 1)
Quarter: 2019Q3

REPORT INFORMATION
  Report Type: Spontaneous
  Country: US (occurrence: US)
  Receive Date: 20190911
  Receipt Date: 20190911
  Transmission Date: 20191005
  Serious: Yes (Hospitalization)
  Sender: FDA-Public Use
  Company Number: US-AMERICAN REGENT INC-2019001932

PATIENT
  Age: 81 Year
  Sex: Female

DRUGS (1)
  1. GLYCOPYRROLATE INJECTION, USP (4601-25) [Suspect]
     Active Substance: GLYCOPYRROLATE
     Indication: BRADYCARDIA
     Dosage: UNK
     Route: 065

REACTIONS (4)
  - Stress cardiomyopathy [Unknown]
  - Bradycardia [Unknown]
  - Drug ineffective [Unknown]
  - Atrioventricular block complete [Unknown]
